FAERS Safety Report 10191492 (Version 3)
Quarter: 2014Q4

REPORT INFORMATION
  Report Type: Report from Study
  Country: FR (occurrence: FR)
  Receive Date: 20140523
  Receipt Date: 20141020
  Transmission Date: 20150528
  Serious: Yes (Death, Other)
  Sender: FDA-Public Use
  Company Number: FR-ALEXION PHARMACEUTICALS INC.-A201402017

PATIENT

DRUGS (1)
  1. SOLIRIS [Suspect]
     Active Substance: ECULIZUMAB
     Indication: PAROXYSMAL NOCTURNAL HAEMOGLOBINURIA
     Dosage: UNK
     Route: 042

REACTIONS (4)
  - Haemorrhage [Fatal]
  - Platelet count decreased [Fatal]
  - Myelodysplastic syndrome [Fatal]
  - Device related infection [Unknown]

NARRATIVE: CASE EVENT DATE: 2014
